FAERS Safety Report 5526794-X (Version None)
Quarter: 2007Q4

REPORT INFORMATION
  Report Type: 
  Country: None (occurrence: None)
  Receive Date: 20071127
  Receipt Date: 20071116
  Transmission Date: 20080405
  Serious: Yes (Other)
  Sender: FDA-Public Use
  Company Number: US-ROCHE-511653

PATIENT
  Age: 85 Year
  Sex: Female

DRUGS (6)
  1. BONIVA [Suspect]
     Indication: OSTEOPOROSIS
     Route: 065
     Dates: start: 20060601, end: 20060701
  2. BONIVA [Suspect]
     Route: 065
     Dates: start: 20060901
  3. MICARDIS [Concomitant]
  4. 1 CONCOMITANT UNSPECIFIED DRUG [Concomitant]
     Dosage: VERALON
  5. TUMS [Concomitant]
  6. MULTI-VITAMIN [Concomitant]

REACTIONS (6)
  - ABDOMINAL PAIN UPPER [None]
  - BLEPHARITIS [None]
  - DIARRHOEA [None]
  - DRY EYE [None]
  - INTRAOCULAR PRESSURE INCREASED [None]
  - MYALGIA [None]
